FAERS Safety Report 4340278-6 (Version None)
Quarter: 2004Q2

REPORT INFORMATION
  Report Type: 
  Country: None (occurrence: None)
  Receive Date: 20040412
  Receipt Date: 20040401
  Transmission Date: 20050107
  Serious: Yes (Hospitalization, Other)
  Sender: FDA-Public Use
  Company Number: 2004-04-0074

PATIENT
  Age: 53 Year
  Sex: Male
  Weight: 72 kg

DRUGS (2)
  1. REBETOL [Suspect]
     Indication: HEPATITIS C
     Dosage: 1000 MG QD ORAL
     Route: 048
     Dates: start: 20030601, end: 20030901
  2. PEGASYS [Suspect]
     Indication: HEPATITIS C
     Dosage: 180 MCG
     Dates: start: 20030601, end: 20030901

REACTIONS (1)
  - COLITIS [None]
